FAERS Safety Report 5335938-4 (Version None)
Quarter: 2007Q2

REPORT INFORMATION
  Report Type: 
  Country: None (occurrence: None)
  Receive Date: 20070301
  Receipt Date: 20061208
  Transmission Date: 20071010
  Serious: Yes (Hospitalization)
  Sender: FDA-Public Use
  Company Number: US200612001735

PATIENT
  Age: 25 Year
  Sex: Male

DRUGS (1)
  1. SYMBYAX (OLANZAPINE AND FLUOXETINE HYROCHLORIDE) CAPSULE [Suspect]
     Dates: start: 20061207, end: 20061201

REACTIONS (1)
  - INTENTIONAL OVERDOSE [None]
